FAERS Safety Report 4569064-9 (Version None)
Quarter: 2005Q1

REPORT INFORMATION
  Report Type: 
  Country: None (occurrence: None)
  Receive Date: 20050118
  Receipt Date: 20040713
  Transmission Date: 20050727
  Serious: Yes (Other)
  Sender: FDA-Public Use
  Company Number: HQWYE131915JUL04

PATIENT
  Age: 51 Year
  Sex: Female

DRUGS (3)
  1. PREMPRO [Suspect]
     Indication: HORMONE REPLACEMENT THERAPY
     Dates: start: 19990101, end: 20020201
  2. ESTRACE [Suspect]
     Indication: OESTROGEN REPLACEMENT THERAPY
     Dates: start: 19990101, end: 20000101
  3. PREMARIN [Suspect]
     Indication: OESTROGEN REPLACEMENT THERAPY
     Dates: start: 20000101, end: 20020201

REACTIONS (1)
  - DEEP VEIN THROMBOSIS [None]
